FAERS Safety Report 18026735 (Version 1)
Quarter: 2020Q3

REPORT INFORMATION
  Report Type: Other
  Country: UG (occurrence: UG)
  Receive Date: 20200715
  Receipt Date: 20200715
  Transmission Date: 20201103
  Serious: Yes (Hospitalization, Other)
  Sender: FDA-Public Use
  Company Number: UG-APPCO PHARMA LLC-2087394

PATIENT
  Age: 36 Year
  Sex: Female

DRUGS (3)
  1. LOPINAVIR?RITONAVIR [Suspect]
     Active Substance: LOPINAVIR\RITONAVIR
     Route: 065
  2. TENOFOVIR DISOPROXIL FUMARATE. [Suspect]
     Active Substance: TENOFOVIR DISOPROXIL FUMARATE
     Route: 065
  3. LAMIVUDINE. [Suspect]
     Active Substance: LAMIVUDINE
     Indication: HIV INFECTION
     Route: 065

REACTIONS (2)
  - Meningitis cryptococcal [Recovering/Resolving]
  - False negative investigation result [Unknown]
